FAERS Safety Report 21081460 (Version 1)
Quarter: 2022Q3

REPORT INFORMATION
  Report Type: Spontaneous
  Country: CN (occurrence: CN)
  Receive Date: 20220714
  Receipt Date: 20220714
  Transmission Date: 20221027
  Serious: Yes (Other)
  Sender: FDA-Public Use
  Company Number: None

PATIENT
  Age: 39 Year
  Sex: Female
  Weight: 80 kg

DRUGS (7)
  1. CYCLOPHOSPHAMIDE [Suspect]
     Active Substance: CYCLOPHOSPHAMIDE
     Indication: Breast cancer female
     Dosage: 900.000000MG ONCE DAILY,CYCLOPHOSPHAMIDE(900MG) + NS(45ML),INJECTION
     Route: 042
     Dates: start: 20220428, end: 20220428
  2. SODIUM CHLORIDE [Suspect]
     Active Substance: SODIUM CHLORIDE
     Indication: Medication dilution
     Dosage: 45 ML, QD,CYCLOPHOSPHAMIDE(900MG) + NS(45ML),INJECTION
     Route: 042
     Dates: start: 20220428, end: 20220428
  3. SODIUM CHLORIDE [Suspect]
     Active Substance: SODIUM CHLORIDE
     Dosage: 250 ML, QD,DOCETAXEL(140MG) + NS(250ML)
     Route: 041
     Dates: start: 20220428, end: 20220428
  4. SODIUM CHLORIDE [Suspect]
     Active Substance: SODIUM CHLORIDE
     Dosage: ,EPIRUBICIN HYDROCHLORIDE(140MG) + NS(100ML)100 ML, QD
     Route: 041
     Dates: start: 20220428, end: 20220428
  5. TAXOTERE [Suspect]
     Active Substance: DOCETAXEL
     Indication: Breast cancer female
     Dosage: 14.000000MG ONCE DAILY,DOCETAXEL(140MG) + NS(250ML)
     Route: 041
     Dates: start: 20220428, end: 20220428
  6. EPIRUBICIN [Suspect]
     Active Substance: EPIRUBICIN
     Indication: Breast cancer female
     Dosage: 14.000000MG ONCE DAILY,EPIRUBICIN HYDROCHLORIDE(140MG) + NS(100ML)
     Route: 041
     Dates: start: 20220428, end: 20220428
  7. Jin you li [Concomitant]
     Indication: Product used for unknown indication
     Dosage: 6 MG
     Route: 058
     Dates: start: 20220429

REACTIONS (2)
  - White blood cell count decreased [Recovered/Resolved]
  - Agranulocytosis [Recovered/Resolved]

NARRATIVE: CASE EVENT DATE: 20220505
